FAERS Safety Report 4464531-0 (Version None)
Quarter: 2004Q3

REPORT INFORMATION
  Report Type: 
  Country: None (occurrence: None)
  Receive Date: 20040929
  Receipt Date: 20040921
  Transmission Date: 20050211
  Serious: Yes (Death)
  Sender: FDA-Public Use
  Company Number: HQWYE140621SEP04

PATIENT
  Age: 81 Year
  Sex: Male

DRUGS (1)
  1. CORDARONE [Suspect]
     Dosage: 1200 MG ONCE, INTRAVENOUS
     Route: 042

REACTIONS (1)
  - MEDICATION ERROR [None]
